FAERS Safety Report 8618893-0 (Version None)
Quarter: 2012Q3

REPORT INFORMATION
  Report Type: 
  Country: None (occurrence: None)
  Receive Date: 20120824
  Receipt Date: 20120815
  Transmission Date: 20120928
  Serious: Yes (Other)
  Sender: FDA-Public Use
  Company Number: CA-JNJFOC-20120806906

PATIENT
  Sex: Male
  Weight: 64.9 kg

DRUGS (5)
  1. REMICADE [Suspect]
     Dosage: LOADING
     Route: 042
     Dates: start: 20120712
  2. LOMOTIL [Concomitant]
     Route: 065
  3. REMICADE [Suspect]
     Indication: CROHN'S DISEASE
     Route: 042
     Dates: start: 20120808
  4. PREDNISONE TAB [Concomitant]
     Route: 065
  5. PENTASA [Concomitant]
     Route: 065

REACTIONS (2)
  - VOMITING [None]
  - PHARYNGITIS [None]
